FAERS Safety Report 25968671 (Version 2)
Quarter: 2025Q4

REPORT INFORMATION
  Report Type: Spontaneous
  Country: JP (occurrence: JP)
  Receive Date: 20251028
  Receipt Date: 20251125
  Transmission Date: 20260118
  Serious: Yes (Other)
  Sender: STRIDES
  Company Number: None

PATIENT
  Age: 41 Year
  Sex: Female
  Weight: 65 kg

DRUGS (1)
  1. PREDNISOLONE [Suspect]
     Active Substance: PREDNISOLONE
     Indication: Optic perineuritis
     Dosage: 0.5 MILLIGRAM/KILOGRAM
     Route: 048

REACTIONS (2)
  - Subretinal fluid [Recovered/Resolved]
  - Off label use [Unknown]
